FAERS Safety Report 24379184 (Version 1)
Quarter: 2024Q3

REPORT INFORMATION
  Report Type: Spontaneous
  Country: US (occurrence: None)
  Receive Date: 20240929
  Receipt Date: 20240929
  Transmission Date: 20241016
  Serious: Yes (Other)
  Sender: Public
  Company Number: None

PATIENT
  Age: 26 Year
  Sex: Male
  Weight: 210 kg

DRUGS (1)
  1. COSMETICS [Suspect]
     Active Substance: COSMETICS
     Indication: Personal hygiene
     Route: 061

REACTIONS (2)
  - Influenza like illness [None]
  - Skin burning sensation [None]

NARRATIVE: CASE EVENT DATE: 20240921
